FAERS Safety Report 7284758-2 (Version None)
Quarter: 2011Q1

REPORT INFORMATION
  Report Type: 
  Country: None (occurrence: None)
  Receive Date: 20110210
  Receipt Date: 20110203
  Transmission Date: 20110831
  Serious: Yes (Death, Hospitalization)
  Sender: FDA-Public Use
  Company Number: BE-AMGEN-BELSP2011006983

PATIENT
  Age: 43 Year
  Sex: Male
  Weight: 87 kg

DRUGS (3)
  1. CEDOCARD [Concomitant]
     Dosage: UNK
  2. ENBREL [Suspect]
     Indication: ANKYLOSING SPONDYLITIS
     Dosage: 50 MG, UNK
     Route: 058
     Dates: start: 20080201, end: 20100901
  3. BREXINE                            /00500401/ [Concomitant]
     Dosage: UNK

REACTIONS (1)
  - RUPTURED CEREBRAL ANEURYSM [None]
